FAERS Safety Report 12929336 (Version 3)
Quarter: 2017Q1

REPORT INFORMATION
  Report Type: Spontaneous
  Country: FR (occurrence: FR)
  Receive Date: 20161110
  Receipt Date: 20170124
  Transmission Date: 20170428
  Serious: Yes (Hospitalization)
  Sender: FDA-Public Use
  Company Number: FR-009507513-1611FRA003790

PATIENT
  Age: 79 Year
  Sex: Male
  Weight: 103.5 kg

DRUGS (9)
  1. LANTUS [Suspect]
     Active Substance: INSULIN GLARGINE
     Indication: INSULIN-REQUIRING TYPE 2 DIABETES MELLITUS
     Dosage: UNK
     Route: 058
  2. SPIRONOLACTONE. [Concomitant]
     Active Substance: SPIRONOLACTONE
     Dosage: UNK
  3. ALFUZOSIN HYDROCHLORIDE. [Concomitant]
     Active Substance: ALFUZOSIN HYDROCHLORIDE
     Dosage: 10 MG ONCE DAILY, EVENING
     Route: 048
  4. DIFFU-K [Concomitant]
     Active Substance: POTASSIUM CHLORIDE
     Dosage: 1DF OF 600 MG TWICE DAILY, MORNING AND EVENING
     Route: 048
  5. DIAMICRON [Suspect]
     Active Substance: GLICLAZIDE
     Indication: INSULIN-REQUIRING TYPE 2 DIABETES MELLITUS
     Dosage: 2 TABLETS OF 60 MG, QAM
     Route: 048
     Dates: end: 201605
  6. SINTROM [Concomitant]
     Active Substance: ACENOCOUMAROL
     Dosage: 1 TABLET OF 4MG ONCE DAILY, EVENING
     Route: 048
  7. FUROSEMIDE. [Concomitant]
     Active Substance: FUROSEMIDE
     Dosage: UNK
  8. HUMALOG [Suspect]
     Active Substance: INSULIN LISPRO
     Indication: INSULIN-REQUIRING TYPE 2 DIABETES MELLITUS
     Dosage: UNK
     Route: 058
  9. VELMETIA [Suspect]
     Active Substance: METFORMIN\SITAGLIPTIN
     Indication: INSULIN-REQUIRING TYPE 2 DIABETES MELLITUS
     Dosage: 1 TABLET, BID (2 TABLET/DAY)
     Route: 048
     Dates: start: 201605, end: 201605

REACTIONS (2)
  - Hypoglycaemia [Recovered/Resolved]
  - Overdose [Recovered/Resolved]

NARRATIVE: CASE EVENT DATE: 20160528
